FAERS Safety Report 6710666-9 (Version None)
Quarter: 2010Q2

REPORT INFORMATION
  Report Type: 
  Country: None (occurrence: None)
  Receive Date: 20100504
  Receipt Date: 20100504
  Transmission Date: 20101027
  Serious: Yes (Disabling, Other)
  Sender: FDA-Public Use
  Company Number: None

PATIENT
  Age: 4 Year
  Sex: Male
  Weight: 22.6799 kg

DRUGS (4)
  1. SINGULAIR [Suspect]
     Indication: HYPERSENSITIVITY
     Dosage: ONCE A DAY
     Dates: start: 20080401, end: 20080830
  2. SINGULAIR [Suspect]
     Indication: SEASONAL ALLERGY
     Dosage: ONCE A DAY
     Dates: start: 20080401, end: 20080830
  3. CLARINEX [Suspect]
     Indication: HYPERSENSITIVITY
     Dosage: ONCE A DAY
     Dates: start: 20080401, end: 20080830
  4. CLARINEX [Suspect]
     Indication: SEASONAL ALLERGY
     Dosage: ONCE A DAY
     Dates: start: 20080401, end: 20080830

REACTIONS (6)
  - ABNORMAL BEHAVIOUR [None]
  - APRAXIA [None]
  - AUTISM [None]
  - SPEECH DISORDER [None]
  - TIC [None]
  - UNEVALUABLE EVENT [None]
